FAERS Safety Report 12376885 (Version 1)
Quarter: 2016Q2

REPORT INFORMATION
  Report Type: Report from Study
  Country: US (occurrence: US)
  Receive Date: 20160517
  Receipt Date: 20160517
  Transmission Date: 20160815
  Serious: No
  Sender: FDA-Public Use
  Company Number: US-MALLINCKRODT-T201503489

PATIENT
  Age: 71 Year
  Sex: Female

DRUGS (1)
  1. REPOSITORY CORTICOTROPIN INJECTION [Suspect]
     Active Substance: CORTICOTROPIN
     Indication: RHEUMATOID ARTHRITIS
     Dosage: UNKNOWN DOSE, GIVEN WKLY
     Route: 058
     Dates: start: 20150709

REACTIONS (7)
  - Fluid retention [Not Recovered/Not Resolved]
  - Urinary tract infection [Unknown]
  - Inflammation [Not Recovered/Not Resolved]
  - Drug ineffective [Unknown]
  - Neuralgia [Unknown]
  - Condition aggravated [Not Recovered/Not Resolved]
  - Drug dose omission [Unknown]

NARRATIVE: CASE EVENT DATE: 201507
